FAERS Safety Report 17727342 (Version 1)
Quarter: 2020Q2

REPORT INFORMATION
  Report Type: Other
  Country: GB (occurrence: GB)
  Receive Date: 20200430
  Receipt Date: 20200430
  Transmission Date: 20200714
  Serious: Yes (Death, Other)
  Sender: FDA-Public Use
  Company Number: GB-IPCA LABORATORIES LIMITED-IPC-2020-GB-001288

PATIENT

DRUGS (6)
  1. ONDANSETRON [Suspect]
     Active Substance: ONDANSETRON
     Indication: VOMITING
     Dosage: UNK
     Route: 065
  2. ONDANSETRON [Interacting]
     Active Substance: ONDANSETRON
     Indication: SYNCOPE
  3. MORPHINE [Interacting]
     Active Substance: MORPHINE
     Indication: CHEST PAIN
     Dosage: 30 MILLIGRAM
     Route: 042
  4. MORPHINE [Interacting]
     Active Substance: MORPHINE
     Indication: ABDOMINAL PAIN UPPER
  5. AMLODIPINE [Interacting]
     Active Substance: AMLODIPINE BESYLATE
     Indication: PRODUCT USED FOR UNKNOWN INDICATION
     Dosage: UNK
     Route: 065
  6. CYCLIZINE [Interacting]
     Active Substance: CYCLIZINE
     Indication: PRODUCT USED FOR UNKNOWN INDICATION
     Dosage: UNK
     Route: 065

REACTIONS (8)
  - Cardiac arrest [Fatal]
  - Bradycardia [Fatal]
  - Syncope [Recovered/Resolved]
  - Unresponsive to stimuli [Fatal]
  - Hypotension [Fatal]
  - Drug interaction [Recovered/Resolved]
  - Vomiting [Recovered/Resolved]
  - Respiratory arrest [Fatal]

NARRATIVE: CASE EVENT DATE: 201501
